FAERS Safety Report 7383745-3 (Version None)
Quarter: 2011Q1

REPORT INFORMATION
  Report Type: 
  Country: None (occurrence: None)
  Receive Date: 20110330
  Receipt Date: 20110307
  Transmission Date: 20110831
  Serious: Yes (Other)
  Sender: FDA-Public Use
  Company Number: JP-ROCHE-767973

PATIENT
  Sex: Female
  Weight: 2.6 kg

DRUGS (1)
  1. OSELTAMIVIR [Suspect]
     Dosage: FORM: ORAL FORMATION.
     Route: 064
     Dates: start: 20091013, end: 20091022

REACTIONS (2)
  - CONGENITAL HYPOTHYROIDISM [None]
  - DRUG EXPOSURE DURING PREGNANCY [None]
